FAERS Safety Report 14896069 (Version 4)
Quarter: 2019Q2

REPORT INFORMATION
  Report Type: Spontaneous
  Country: ES (occurrence: ES)
  Receive Date: 20180515
  Receipt Date: 20190529
  Transmission Date: 20190711
  Serious: Yes (Life-Threatening, Hospitalization, Other)
  Sender: FDA-Public Use
  Company Number: ES-PFIZER INC-2018196626

PATIENT
  Age: 58 Year
  Sex: Male
  Weight: 100 kg

DRUGS (6)
  1. EPLERENONE. [Suspect]
     Active Substance: EPLERENONE
     Dosage: 50 MG, QD (30 TABLETS)
     Route: 048
     Dates: start: 20150713, end: 20180401
  2. SPIRIVA [Suspect]
     Active Substance: TIOTROPIUM BROMIDE MONOHYDRATE
     Dosage: 18 UG, Q8H (1 INHALER + 30 CAPSULES)
     Route: 055
     Dates: start: 20160401, end: 20180401
  3. ENTRESTO [Suspect]
     Active Substance: SACUBITRIL\VALSARTAN
     Dosage: 1 DF, Q12H (28 TABLETS)
     Route: 048
     Dates: start: 20180306, end: 20180401
  4. TRANGOREX [Suspect]
     Active Substance: AMIODARONE HYDROCHLORIDE
     Indication: TACHYCARDIA
     Dosage: 200 MG, DAILY (500 TABLETS)
     Route: 048
     Dates: start: 201709, end: 20180401
  5. BISOPROLOL [Concomitant]
     Active Substance: BISOPROLOL
     Dosage: 10 MG, QD (500 TABLETS)
     Route: 048
     Dates: start: 20151001, end: 20180401
  6. ATORVASTATIN [Concomitant]
     Active Substance: ATORVASTATIN
     Dosage: 80 MG, QD (500 TABLETS)
     Dates: start: 20151211

REACTIONS (1)
  - Ventricular tachycardia [Recovered/Resolved]

NARRATIVE: CASE EVENT DATE: 20180331
